FAERS Safety Report 13887224 (Version 1)
Quarter: 2017Q3

REPORT INFORMATION
  Report Type: Spontaneous
  Country: CA (occurrence: CA)
  Receive Date: 20170821
  Receipt Date: 20170821
  Transmission Date: 20171127
  Serious: Yes (Hospitalization)
  Sender: FDA-Public Use
  Company Number: CA-MYLANLABS-2017M1051293

PATIENT

DRUGS (1)
  1. TESTOSTERONE. [Suspect]
     Active Substance: TESTOSTERONE
     Indication: PRODUCT USED FOR UNKNOWN INDICATION
     Dosage: SUSPENDED IN OIL
     Route: 042

REACTIONS (3)
  - Drug abuse [Recovered/Resolved]
  - Alkalosis [Recovered/Resolved]
  - Pulmonary oil microembolism [Recovered/Resolved]
